FAERS Safety Report 5424057-4 (Version None)
Quarter: 2007Q3

REPORT INFORMATION
  Report Type: 
  Country: None (occurrence: None)
  Receive Date: 20070727
  Receipt Date: 20060426
  Transmission Date: 20080115
  Serious: Yes (Hospitalization)
  Sender: FDA-Public Use
  Company Number: THYM-11125

PATIENT
  Age: 47 Year
  Sex: Female
  Weight: 82 kg

DRUGS (7)
  1. THYMOGLOBULIN [Suspect]
     Indication: RENAL TRANSPLANT
     Dosage: 2.5 MG/KG QD IV
     Route: 042
     Dates: start: 20041012, end: 20041012
  2. THYMOGLOBULIN [Suspect]
     Indication: RENAL TRANSPLANT
     Dosage: 1.25 MG/KG QD IV
     Route: 042
     Dates: start: 20041013, end: 20041015
  3. POLARAMINE [Concomitant]
  4. METHYLPREDNISOLONE 16MG TAB [Concomitant]
  5. PREDNISONE [Concomitant]
  6. CELLCEPT [Concomitant]
  7. NEORAL [Concomitant]

REACTIONS (1)
  - LYMPHOCELE [None]
